FAERS Safety Report 5793433-2 (Version None)
Quarter: 2008Q2

REPORT INFORMATION
  Report Type: 
  Country: None (occurrence: None)
  Receive Date: 20080627
  Receipt Date: 20080617
  Transmission Date: 20081010
  Serious: Yes (Hospitalization)
  Sender: FDA-Public Use
  Company Number: US-JNJFOC-20080604750

PATIENT
  Sex: Female
  Weight: 77.57 kg

DRUGS (18)
  1. FENTANYL TRANSDERMAL SYSTEM [Suspect]
     Indication: RHEUMATOID ARTHRITIS
     Route: 062
  2. FENTANYL TRANSDERMAL SYSTEM [Suspect]
     Indication: LEUKAEMIA
     Route: 062
  3. FENTANYL TRANSDERMAL SYSTEM [Suspect]
     Indication: RHEUMATOID ARTHRITIS
     Route: 062
  4. FENTANYL TRANSDERMAL SYSTEM [Suspect]
     Indication: LEUKAEMIA
     Route: 062
  5. GENGRAF [Suspect]
     Indication: LEUKAEMIA
     Route: 065
  6. PROTONIX [Concomitant]
     Indication: CHEMOTHERAPY
     Route: 048
  7. LASIX [Concomitant]
     Indication: TRANSFUSION
     Route: 048
  8. NORTRIPTYLINE HCL [Concomitant]
     Indication: PAIN
     Route: 048
  9. REQUIP [Concomitant]
     Indication: FIBROMYALGIA
     Route: 048
  10. REQUIP [Concomitant]
     Indication: PAIN IN EXTREMITY
     Dosage: AT BEDTIME
     Route: 048
  11. FELEXERIL [Concomitant]
     Indication: MUSCLE SPASMS
     Route: 048
  12. LEXAPRO [Concomitant]
     Indication: DEPRESSION
     Route: 048
  13. HYDROCODONE [Concomitant]
     Indication: ARTHRITIS
     Route: 048
  14. HYDROCODONE [Concomitant]
     Indication: FIBROMYALGIA
     Route: 048
  15. KETOPROFEN [Concomitant]
     Indication: ARTHRALGIA
     Dosage: AS NEEDED
     Route: 048
  16. CYMBALTA [Concomitant]
     Indication: DEPRESSION
     Route: 048
  17. DIAZEPAM [Concomitant]
     Indication: ANXIETY
     Route: 048
  18. OXYCODONE HCL [Concomitant]
     Indication: PAIN
     Route: 048

REACTIONS (14)
  - APPLICATION SITE REACTION [None]
  - ASTHENIA [None]
  - BLOOD PRESSURE ABNORMAL [None]
  - CONFUSIONAL STATE [None]
  - FALL [None]
  - FATIGUE [None]
  - HAEMOGLOBIN DECREASED [None]
  - IMMUNE SYSTEM DISORDER [None]
  - INAPPROPRIATE SCHEDULE OF DRUG ADMINISTRATION [None]
  - INFECTION [None]
  - PULSE ABSENT [None]
  - RESPIRATORY ARREST [None]
  - SOMNOLENCE [None]
  - WRONG TECHNIQUE IN DRUG USAGE PROCESS [None]
